FAERS Safety Report 24329112 (Version 1)
Quarter: 2024Q3

REPORT INFORMATION
  Report Type: Spontaneous
  Country: GB (occurrence: GB)
  Receive Date: 20240917
  Receipt Date: 20240917
  Transmission Date: 20241017
  Serious: Yes (Other)
  Sender: NOVARTIS
  Company Number: GB-002147023-NVSC2019GB122841

PATIENT

DRUGS (1)
  1. KYMRIAH [Suspect]
     Active Substance: TISAGENLECLEUCEL
     Indication: Product used for unknown indication
     Dosage: UNK
     Route: 065

REACTIONS (10)
  - Guillain-Barre syndrome [Unknown]
  - Quadriparesis [Unknown]
  - Immune effector cell-associated neurotoxicity syndrome [Unknown]
  - Disorientation [Unknown]
  - Lymphadenopathy [Unknown]
  - Breast swelling [Unknown]
  - Pyrexia [Unknown]
  - Asthenia [Unknown]
  - Fatigue [Unknown]
  - Hypotension [Unknown]
